FAERS Safety Report 21002151 (Version 3)
Quarter: 2022Q3

REPORT INFORMATION
  Report Type: Report from Study
  Country: RU (occurrence: None)
  Receive Date: 20220624
  Receipt Date: 20220728
  Transmission Date: 20221027
  Serious: Yes (Hospitalization)
  Sender: FDA-Public Use
  Company Number: RU-ROCHE-3121067

PATIENT
  Age: 48 Year
  Sex: Female
  Weight: 99 kg

DRUGS (12)
  1. PLACEBO [Suspect]
     Active Substance: UNSPECIFIED INGREDIENT
     Indication: HER2 positive breast cancer
     Route: 041
     Dates: start: 20211228
  2. TRASTUZUMAB [Suspect]
     Active Substance: TRASTUZUMAB
     Indication: HER2 positive breast cancer
     Dosage: 06/JUN/2022 WAS MOST RECENT DOSE (600MG) OF TRASTUZUMAB PRIOR TO AE
     Route: 058
     Dates: start: 20220218
  3. ADO-TRASTUZUMAB EMTANSINE [Suspect]
     Active Substance: ADO-TRASTUZUMAB EMTANSINE
     Indication: HER2 positive breast cancer
     Dosage: ON 28/DEC/2021, START DATE OF MOST RECENT DOSE OF TRASTUZUMAB EMTANSINE PRIOR TO AE AND SAE?DOSE LAS
     Route: 042
     Dates: start: 20211228
  4. INDAPAMIDE [Concomitant]
     Active Substance: INDAPAMIDE
     Dates: start: 2016
  5. LISINOPRIL [Concomitant]
     Active Substance: LISINOPRIL
     Dates: start: 2016
  6. GOSERELIN [Concomitant]
     Active Substance: GOSERELIN
     Dates: start: 20211224
  7. OMEPRAZOLE [Concomitant]
     Active Substance: OMEPRAZOLE
     Route: 048
     Dates: start: 20220118
  8. ANASTROZOLE [Concomitant]
     Active Substance: ANASTROZOLE
     Route: 048
     Dates: start: 20220202
  9. MAGNESIUM ASPARTATE\POTASSIUM ASPARTATE [Concomitant]
     Active Substance: MAGNESIUM ASPARTATE\POTASSIUM ASPARTATE
     Dosage: 1 TABLET
     Route: 048
     Dates: start: 20220201
  10. BETAMETHASONE [Concomitant]
     Active Substance: BETAMETHASONE
     Indication: Radiation skin injury
     Route: 065
     Dates: start: 20220324
  11. POTASSIUM ASPARTATE AND MAGNESIUM ASPARTATE [Concomitant]
     Dosage: 1 TABLET
     Route: 048
     Dates: start: 20220201
  12. IBUPROFEN [Concomitant]
     Active Substance: IBUPROFEN
     Indication: Arthralgia
     Route: 061
     Dates: start: 20220427

REACTIONS (1)
  - Cellulitis [Not Recovered/Not Resolved]

NARRATIVE: CASE EVENT DATE: 20220616
